FAERS Safety Report 25747580 (Version 1)
Quarter: 2025Q3

REPORT INFORMATION
  Report Type: Spontaneous
  Country: CA (occurrence: CA)
  Receive Date: 20250901
  Receipt Date: 20250901
  Transmission Date: 20251021
  Serious: Yes (Other)
  Sender: ROCHE
  Company Number: CA-ROCHE-10000373126

PATIENT
  Sex: Female
  Weight: 69 kg

DRUGS (7)
  1. PERJETA [Suspect]
     Active Substance: PERTUZUMAB
     Indication: HER2 positive breast cancer
     Dosage: PERJETA 14ML VIAL - CONCENTRATE SOL
     Route: 042
  2. PERJETA [Suspect]
     Active Substance: PERTUZUMAB
     Route: 042
  3. TRASTUZUMAB [Suspect]
     Active Substance: TRASTUZUMAB
     Indication: Product used for unknown indication
     Route: 065
  4. CETIRIZINE HYDROCHLORIDE [Concomitant]
     Active Substance: CETIRIZINE HYDROCHLORIDE
  5. OMEPRAZOLE [Concomitant]
     Active Substance: OMEPRAZOLE
  6. RANITIDINE [Concomitant]
     Active Substance: RANITIDINE
  7. TAXOL [Concomitant]
     Active Substance: PACLITAXEL

REACTIONS (4)
  - Dry skin [Unknown]
  - Uterine infection [Unknown]
  - Weight decreased [Unknown]
  - Weight increased [Unknown]
